FAERS Safety Report 5162546-0 (Version None)
Quarter: 2006Q4

REPORT INFORMATION
  Report Type: 
  Country: None (occurrence: None)
  Receive Date: 20061201
  Receipt Date: 20061127
  Transmission Date: 20070319
  Serious: Yes (Hospitalization, Disabling)
  Sender: FDA-Public Use
  Company Number: JP-BOEHRINGER INGELHEIM PHARMACEUTICALS, INC.-2006-BP-13818NB

PATIENT
  Sex: Male
  Weight: 61 kg

DRUGS (8)
  1. BI-SIFROL TABLETS [Suspect]
     Indication: PARKINSON'S DISEASE
     Route: 048
     Dates: start: 20050307
  2. RIOHARD [Concomitant]
     Indication: HYPERTENSION
     Route: 048
     Dates: start: 19950101
  3. TOCOVERAZE (ELASTASE) [Concomitant]
     Indication: HYPERLIPIDAEMIA
     Dosage: 3600 U
     Route: 048
     Dates: start: 19950101
  4. FORSENID (SENNOSIDE) [Concomitant]
     Indication: CONSTIPATION
     Route: 048
     Dates: start: 19950101
  5. MENESIT [Concomitant]
     Indication: PARKINSON'S DISEASE
     Route: 048
     Dates: start: 20000101
  6. SYMMETREL [Concomitant]
     Indication: PARKINSON'S DISEASE
     Route: 048
     Dates: start: 20000101
  7. FP [Concomitant]
     Indication: PARKINSON'S DISEASE
     Route: 048
     Dates: start: 20000101
  8. TERNELIN [Concomitant]
     Indication: BACK PAIN
     Route: 048
     Dates: start: 20040301

REACTIONS (3)
  - DELIRIUM [None]
  - ELECTROCARDIOGRAM ABNORMAL [None]
  - MYOCARDIAL INFARCTION [None]
